FAERS Safety Report 5067062-2 (Version None)
Quarter: 2006Q3

REPORT INFORMATION
  Report Type: 
  Country: None (occurrence: None)
  Receive Date: 20060727
  Receipt Date: 20060717
  Transmission Date: 20061208
  Serious: Yes (Other)
  Sender: FDA-Public Use
  Company Number: 2006089303

PATIENT
  Sex: Female

DRUGS (4)
  1. PROVERA [Suspect]
     Indication: HORMONE REPLACEMENT THERAPY
     Dosage: ORAL; MORE THAN 20 YEARS - STOPPED
     Route: 048
  2. MEDROXYPROGESTERONE ACETATE [Suspect]
     Indication: HORMONE REPLACEMENT THERAPY
     Dosage: ORAL; MORE THAN 20 YEARS - STOPPED
     Route: 048
  3. PREMARIN [Suspect]
     Indication: HORMONE REPLACEMENT THERAPY
     Dosage: MORE THAN 20 YEARS - STOPPED
  4. PREMPRO [Suspect]
     Indication: HORMONE REPLACEMENT THERAPY
     Dosage: MORE THAN 20 YEARS - STOPPED

REACTIONS (4)
  - BREAST CANCER METASTATIC [None]
  - LUNG DISORDER [None]
  - POST PROCEDURAL COMPLICATION [None]
  - SCAR [None]
